FAERS Safety Report 6202248-2 (Version None)
Quarter: 2009Q2

REPORT INFORMATION
  Report Type: 
  Country: None (occurrence: None)
  Receive Date: 20090526
  Receipt Date: 20090515
  Transmission Date: 20091009
  Serious: Yes (Other)
  Sender: FDA-Public Use
  Company Number: JP-MERCK-0905USA00863

PATIENT
  Age: 55 Year
  Sex: Female

DRUGS (6)
  1. TIMOPTIC-XE [Suspect]
     Indication: GLAUCOMA
     Route: 047
     Dates: start: 20001005, end: 20031216
  2. XALATAN [Concomitant]
     Route: 047
     Dates: start: 20010501
  3. AZOPT [Concomitant]
     Route: 047
     Dates: start: 20030501
  4. DETANTOL [Concomitant]
     Route: 047
     Dates: start: 20010901
  5. SANCOBA [Concomitant]
     Route: 047
     Dates: start: 20011201
  6. HYALEIN [Concomitant]
     Route: 047
     Dates: start: 20000201

REACTIONS (2)
  - ANGINA PECTORIS [None]
  - ARRHYTHMIA [None]
